FAERS Safety Report 20369354 (Version 1)
Quarter: 2022Q1

REPORT INFORMATION
  Report Type: Spontaneous
  Country: US (occurrence: US)
  Receive Date: 20220124
  Receipt Date: 20220124
  Transmission Date: 20220424
  Serious: No
  Sender: FDA-Public Use
  Company Number: US-BRISTOL-MYERS SQUIBB COMPANY-BMS-2022-005380

PATIENT
  Age: 72 Year
  Sex: Male
  Weight: 99.79 kg

DRUGS (1)
  1. ELIQUIS [Suspect]
     Active Substance: APIXABAN
     Indication: Cerebrovascular accident prophylaxis
     Dosage: UNK UNK, BID
     Route: 048
     Dates: start: 202104

REACTIONS (2)
  - Suspected COVID-19 [Unknown]
  - Dehydration [Unknown]

NARRATIVE: CASE EVENT DATE: 20220110
